FAERS Safety Report 12473191 (Version 5)
Quarter: 2018Q1

REPORT INFORMATION
  Report Type: Spontaneous
  Country: US (occurrence: US)
  Receive Date: 20160616
  Receipt Date: 20180323
  Transmission Date: 20180508
  Serious: Yes (Hospitalization)
  Sender: FDA-Public Use
  Company Number: US-PFIZER INC-2016297514

PATIENT
  Age: 84 Year
  Sex: Male
  Weight: 60 kg

DRUGS (16)
  1. VORICONAZOLE. [Interacting]
     Active Substance: VORICONAZOLE
     Indication: PHAEHYPHOMYCOSIS
     Dosage: 250 MG, 2X/DAY(Q12H)
     Route: 048
  2. VANCOMYCIN [Concomitant]
     Active Substance: VANCOMYCIN
     Dosage: UNK
  3. VORICONAZOLE. [Interacting]
     Active Substance: VORICONAZOLE
     Indication: CEREBRAL FUNGAL INFECTION
     Dosage: 400 MG, 2X/DAY 6 MG/KG,EVERY 12 HOURS (Q12H) X 2 DOSES
     Route: 042
  4. VORICONAZOLE. [Interacting]
     Active Substance: VORICONAZOLE
     Indication: PHAEHYPHOMYCOSIS
  5. METRONIDAZOLE. [Concomitant]
     Active Substance: METRONIDAZOLE
     Dosage: UNK
  6. VORICONAZOLE. [Suspect]
     Active Substance: VORICONAZOLE
     Indication: ANTIFUNGAL TREATMENT
     Dosage: 250 MG, 2X/DAY (4 MG/KG,Q12H FOR ONE WEEK)
  7. VORICONAZOLE. [Interacting]
     Active Substance: VORICONAZOLE
     Indication: CEREBRAL FUNGAL INFECTION
     Dosage: 200 MG, 2X/DAY (Q12H)
  8. DEXAMETHASONE. [Interacting]
     Active Substance: DEXAMETHASONE
     Dosage: 2 MG, 3X/DAY (Q8H)
  9. DEXAMETHASONE. [Interacting]
     Active Substance: DEXAMETHASONE
     Dosage: 1 MG, 3X/DAY (Q8H)
  10. DEXAMETHASONE. [Interacting]
     Active Substance: DEXAMETHASONE
     Dosage: 0.5 MG, 3X/DAY (Q8H)
  11. CEFEPIME [Concomitant]
     Active Substance: CEFEPIME HYDROCHLORIDE
     Dosage: UNK
  12. DEXAMETHASONE. [Interacting]
     Active Substance: DEXAMETHASONE
     Indication: BRAIN OEDEMA
     Dosage: 4 MG, 3X/DAY (EVERY 8 HOURS (Q8H)
     Route: 048
  13. DEXAMETHASONE. [Interacting]
     Active Substance: DEXAMETHASONE
     Dosage: 4 MG, 3X/DAY (Q8H)
     Route: 048
  14. VORICONAZOLE. [Interacting]
     Active Substance: VORICONAZOLE
     Dosage: 300 MG, 2X/DAY (Q12H)
     Route: 048
  15. VORICONAZOLE. [Interacting]
     Active Substance: VORICONAZOLE
     Indication: ANTIFUNGAL TREATMENT
     Dosage: 300 MG, 2X/DAY (Q12H)
     Route: 042
  16. DEXAMETHASONE. [Interacting]
     Active Substance: DEXAMETHASONE
     Dosage: 3 MG, 3X/DAY (Q8H)
     Route: 048

REACTIONS (4)
  - Drug level below therapeutic [Unknown]
  - Product use in unapproved indication [Unknown]
  - Treatment failure [Unknown]
  - Drug interaction [Unknown]
